FAERS Safety Report 6108868-8 (Version None)
Quarter: 2009Q1

REPORT INFORMATION
  Report Type: 
  Country: None (occurrence: None)
  Receive Date: 20090310
  Receipt Date: 20090302
  Transmission Date: 20090719
  Serious: Yes (Life-Threatening, Hospitalization)
  Sender: FDA-Public Use
  Company Number: CH-JNJFOC-20090300584

PATIENT
  Age: 34 Year
  Sex: Male

DRUGS (6)
  1. REMICADE [Suspect]
     Indication: COLITIS ULCERATIVE
     Route: 042
  2. SPIRICORT [Suspect]
     Indication: COLITIS ULCERATIVE
     Route: 048
  3. COMBIVIR [Concomitant]
     Indication: HIV INFECTION
     Route: 048
  4. INVIRASE [Concomitant]
     Indication: HIV INFECTION
     Route: 048
  5. NORVIR [Concomitant]
     Indication: HIV INFECTION
     Route: 048
  6. BACTRIM [Concomitant]
     Indication: HIV INFECTION
     Route: 048

REACTIONS (1)
  - DISSEMINATED TUBERCULOSIS [None]
